FAERS Safety Report 8025009 (Version 5)
Quarter: 2013Q1

REPORT INFORMATION
  Report Type: Report from Study
  Country: FR (occurrence: FR)
  Receive Date: 20110707
  Receipt Date: 20130329
  Transmission Date: 20140127
  Serious: Yes (Other)
  Sender: FDA-Public Use
  Company Number: FR-US-EMD SERONO, INC.-7067046

PATIENT
  Age: 41 Year
  Sex: Female
  Weight: 68 kg

DRUGS (6)
  1. BLINDED STUDY MEDICATION [Suspect]
     Indication: MULTIPLE SCLEROSIS
     Route: 048
     Dates: start: 20100402, end: 20110620
  2. REBIF [Suspect]
     Indication: MULTIPLE SCLEROSIS
     Route: 058
     Dates: start: 20101203, end: 20110619
  3. DOLIPRANE [Concomitant]
     Indication: MULTIPLE SCLEROSIS
     Route: 048
     Dates: start: 20100916, end: 20110619
  4. HARMONET [Concomitant]
     Indication: CONTRACEPTION
     Route: 048
     Dates: start: 20100822
  5. STAGID [Concomitant]
     Indication: DIABETES MELLITUS
     Route: 048
     Dates: start: 20110225
  6. ADVIL [Concomitant]
     Indication: MULTIPLE SCLEROSIS
     Route: 048
     Dates: start: 20091203, end: 20100915

REACTIONS (1)
  - Abdominal abscess [Recovered/Resolved with Sequelae]
